FAERS Safety Report 13190419 (Version 6)
Quarter: 2017Q3

REPORT INFORMATION
  Report Type: Report from Study
  Country: US (occurrence: US)
  Receive Date: 20170206
  Receipt Date: 20170807
  Transmission Date: 20171127
  Serious: Yes (Other)
  Sender: FDA-Public Use
  Company Number: US-GILEAD-2017-0256163

PATIENT
  Age: 59 Year
  Sex: Female
  Weight: 117.91 kg

DRUGS (1)
  1. AMBRISENTAN [Suspect]
     Active Substance: AMBRISENTAN
     Indication: PRODUCT USED FOR UNKNOWN INDICATION
     Dosage: 5 MG, QD
     Route: 065
     Dates: start: 20161222

REACTIONS (10)
  - Dyspnoea [Recovering/Resolving]
  - Drug dose omission [Unknown]
  - Hypotension [Unknown]
  - Peripheral swelling [Recovered/Resolved]
  - Pulmonary arterial hypertension [Unknown]
  - Joint swelling [Not Recovered/Not Resolved]
  - Weight increased [Not Recovered/Not Resolved]
  - Malaise [Not Recovered/Not Resolved]
  - Weight decreased [Unknown]
  - Impaired work ability [Unknown]
